FAERS Safety Report 14240507 (Version 3)
Quarter: 2018Q1

REPORT INFORMATION
  Report Type: Spontaneous
  Country: IT (occurrence: IT)
  Receive Date: 20171130
  Receipt Date: 20180329
  Transmission Date: 20180508
  Serious: Yes (Hospitalization, Other)
  Sender: FDA-Public Use
  Company Number: IT-BAYER-2017-226677

PATIENT
  Age: 41 Year
  Sex: Female

DRUGS (10)
  1. CLIMARA [Suspect]
     Active Substance: ESTRADIOL
     Indication: FEMINISATION ACQUIRED
     Dosage: 3 MG, QD
     Route: 062
  2. LEUPROLIDE ACE [Suspect]
     Active Substance: LEUPROLIDE ACETATE
     Indication: FEMINISATION ACQUIRED
     Dosage: 3 MG, UNK
  3. CYPROTERONE ACETATE 50 [IN FEMALE] [Suspect]
     Active Substance: CYPROTERONE ACETATE
     Indication: FEMINISATION ACQUIRED
  4. CYPROTERONE ACETATE 50 [IN FEMALE] [Suspect]
     Active Substance: CYPROTERONE ACETATE
     Indication: TRANSGENDER HORMONAL THERAPY
     Dosage: 50 MG, QD
  5. CLIMARA [Suspect]
     Active Substance: ESTRADIOL
     Indication: FEMINISATION ACQUIRED
     Dosage: 2 MG, QD
     Route: 062
  6. CLIMARA [Suspect]
     Active Substance: ESTRADIOL
     Indication: FEMINISATION ACQUIRED
     Dosage: 1 MG, QD
     Route: 062
  7. LEUPROLIDE ACE [Suspect]
     Active Substance: LEUPROLIDE ACETATE
     Indication: FEMINISATION ACQUIRED
     Dosage: 1 MG, UNK
  8. LEUPROLIDE ACE [Suspect]
     Active Substance: LEUPROLIDE ACETATE
     Indication: FEMINISATION ACQUIRED
     Dosage: 3.75 MG, UNK
  9. LEUPROLIDE ACE [Suspect]
     Active Substance: LEUPROLIDE ACETATE
     Indication: FEMINISATION ACQUIRED
     Dosage: 2 MG, UNK
  10. LEUPROLIDE ACE [Suspect]
     Active Substance: LEUPROLIDE ACETATE
     Indication: TRANSGENDER HORMONAL THERAPY
     Dosage: 50 MG, UNK

REACTIONS (3)
  - Meningioma [Recovered/Resolved]
  - Product use in unapproved indication [None]
  - Off label use [Unknown]
